FAERS Safety Report 25846631 (Version 1)
Quarter: 2025Q3

REPORT INFORMATION
  Report Type: Spontaneous
  Country: US (occurrence: US)
  Receive Date: 20250925
  Receipt Date: 20250925
  Transmission Date: 20251020
  Serious: Yes (Other)
  Sender: AMGEN
  Company Number: US-AMGEN-USASP2025185567

PATIENT
  Age: 55 Year
  Sex: Male

DRUGS (3)
  1. PREDNISONE [Suspect]
     Active Substance: PREDNISONE
     Indication: Psoriasis
     Route: 065
  2. PREDNISONE [Suspect]
     Active Substance: PREDNISONE
     Route: 065
  3. RISANKIZUMAB [Concomitant]
     Active Substance: RISANKIZUMAB
     Indication: Psoriasis

REACTIONS (3)
  - Pemphigus [Unknown]
  - Dermatitis psoriasiform [Unknown]
  - Off label use [Unknown]
